FAERS Safety Report 18887825 (Version 1)
Quarter: 2021Q1

REPORT INFORMATION
  Report Type: Spontaneous
  Country: DE (occurrence: DE)
  Receive Date: 20210212
  Receipt Date: 20210212
  Transmission Date: 20210420
  Serious: Yes (Other)
  Sender: FDA-Public Use
  Company Number: DE-ALLERGAN-2106079US

PATIENT
  Sex: Female

DRUGS (9)
  1. PREDNISOLONE UNK [Suspect]
     Active Substance: PREDNISOLONE
     Indication: PRODUCT USED FOR UNKNOWN INDICATION
     Dosage: UNK
  2. TIGECYCLINE. [Concomitant]
     Active Substance: TIGECYCLINE
  3. AZITHROMYCIN ANHYDROUS. [Concomitant]
     Active Substance: AZITHROMYCIN ANHYDROUS
  4. ONDANSETRON [Concomitant]
     Active Substance: ONDANSETRON
  5. PANTOPRAZOL [Concomitant]
     Active Substance: PANTOPRAZOLE SODIUM
  6. AMIKACIN. [Concomitant]
     Active Substance: AMIKACIN
  7. KALYDECO [Concomitant]
     Active Substance: IVACAFTOR
  8. LINEZOLID. [Concomitant]
     Active Substance: LINEZOLID
  9. KAFTRIO 75 MG/50 MG/100 MG [Concomitant]

REACTIONS (1)
  - Type 1 diabetes mellitus [Unknown]
